FAERS Safety Report 21216711 (Version 1)
Quarter: 2022Q3

REPORT INFORMATION
  Report Type: Other
  Country: None (occurrence: JP)
  Receive Date: 20220816
  Receipt Date: 20220816
  Transmission Date: 20221027
  Serious: Yes (Hospitalization, Other)
  Sender: FDA-Public Use
  Company Number: JP-VGYAAN Pharmaceuticals LLC-2131927

PATIENT
  Age: 11 Year
  Sex: Female

DRUGS (1)
  1. CARBAMAZEPINE [Suspect]
     Active Substance: CARBAMAZEPINE
     Indication: Partial seizures
     Route: 065

REACTIONS (4)
  - Partial seizures [Recovered/Resolved]
  - Intentional overdose [Unknown]
  - Intentional product misuse [Unknown]
  - Coma [Recovered/Resolved]
